FAERS Safety Report 20451463 (Version 1)
Quarter: 2022Q1

REPORT INFORMATION
  Report Type: Spontaneous
  Country: None (occurrence: US)
  Receive Date: 20220209
  Receipt Date: 20220209
  Transmission Date: 20220423
  Serious: Yes (Hospitalization)
  Sender: FDA-Public Use
  Company Number: US-Church + Dwight Co., Inc.-2124788

PATIENT
  Age: 31 Year
  Sex: Male

DRUGS (1)
  1. PURE BAKING SODA [Suspect]
     Active Substance: SODIUM BICARBONATE
     Route: 048
     Dates: start: 20211101

REACTIONS (1)
  - Seizure [Unknown]

NARRATIVE: CASE EVENT DATE: 20220128
